FAERS Safety Report 17945601 (Version 2)
Quarter: 2020Q3

REPORT INFORMATION
  Report Type: Report from Study
  Country: CA (occurrence: CA)
  Receive Date: 20200625
  Receipt Date: 20200831
  Transmission Date: 20201103
  Serious: Yes (Other)
  Sender: FDA-Public Use
  Company Number: CA-JNJFOC-20200402159

PATIENT
  Age: 47 Year
  Sex: Male

DRUGS (1)
  1. SIMPONI [Suspect]
     Active Substance: GOLIMUMAB
     Indication: ANKYLOSING SPONDYLITIS
     Route: 058
     Dates: start: 20191106

REACTIONS (9)
  - Nasal congestion [Unknown]
  - Pain [Unknown]
  - Rhinorrhoea [Unknown]
  - Dysuria [Unknown]
  - Hepatic infection [Recovered/Resolved]
  - Kidney infection [Recovered/Resolved]
  - Localised infection [Recovered/Resolved]
  - Dyspnoea [Unknown]
  - Back pain [Unknown]

NARRATIVE: CASE EVENT DATE: 20200324
